FAERS Safety Report 7299606-4 (Version None)
Quarter: 2011Q1

REPORT INFORMATION
  Report Type: 
  Country: None (occurrence: None)
  Receive Date: 20110209
  Receipt Date: 20110124
  Transmission Date: 20110831
  Serious: Yes (Death, Hospitalization)
  Sender: FDA-Public Use
  Company Number: 2011000543

PATIENT
  Age: 70 Year
  Sex: Male
  Weight: 48.4 kg

DRUGS (15)
  1. AVASTIN [Suspect]
     Indication: LARGE CELL CARCINOMA OF THE RESPIRATORY TRACT STAGE UNSPECIFIED
     Dosage: 15 MG/KG, 1 X PER 4 WEEKS, INTRAVENOUS
     Route: 042
     Dates: start: 20100716, end: 20101201
  2. CARBOPLATIN [Concomitant]
  3. PACLITAXEL [Concomitant]
  4. LOXONIN (LOXOPROFEN SODIUM) [Concomitant]
  5. MYSLEE [Concomitant]
  6. ZYPREXA [Concomitant]
  7. TRANSAMIN (TRANEXAMIC ACID) [Concomitant]
  8. OPSO [Concomitant]
  9. NAUZELIN (DOMPERIDONE) [Concomitant]
  10. TARCEVA [Suspect]
     Indication: LARGE CELL CARCINOMA OF THE RESPIRATORY TRACT STAGE UNSPECIFIED
     Dosage: 150 MG, QD, ORAL
     Route: 048
     Dates: start: 20101026
  11. DUROTEP [Concomitant]
  12. ADONA (CARBAZOCHROME SODIUM SULFONATE) [Concomitant]
  13. KETOPROFEN [Concomitant]
  14. CYTOTEC [Concomitant]
  15. PRIMPERAN TAB [Concomitant]

REACTIONS (12)
  - RASH [None]
  - CEREBRAL HAEMORRHAGE [None]
  - NEOPLASM MALIGNANT [None]
  - MENINGITIS [None]
  - BLOOD PRESSURE DIASTOLIC DECREASED [None]
  - LARGE CELL LUNG CANCER METASTATIC [None]
  - ABASIA [None]
  - HEPATIC STEATOSIS [None]
  - MALAISE [None]
  - DECREASED APPETITE [None]
  - DIZZINESS [None]
  - NAUSEA [None]
